FAERS Safety Report 13863396 (Version 1)
Quarter: 2017Q3

REPORT INFORMATION
  Report Type: Spontaneous
  Country: US (occurrence: US)
  Receive Date: 20170814
  Receipt Date: 20170814
  Transmission Date: 20171127
  Serious: No
  Sender: FDA-Public Use
  Company Number: US-PFIZER INC-2017349187

PATIENT
  Age: 63 Year
  Sex: Male
  Weight: 104 kg

DRUGS (12)
  1. TAMSULOSIN [Concomitant]
     Active Substance: TAMSULOSIN
  2. CYCLOBENZAPRINE. [Concomitant]
     Active Substance: CYCLOBENZAPRINE
  3. TAGAMET [Concomitant]
     Active Substance: CIMETIDINE
  4. DEPO-TESTOSTERONE [Suspect]
     Active Substance: TESTOSTERONE CYPIONATE
     Indication: HORMONE REPLACEMENT THERAPY
     Dosage: 200 MG, EVERY 2 WEEKS
     Route: 030
  5. METOPROLOL. [Concomitant]
     Active Substance: METOPROLOL
  6. DEPO-TESTOSTERONE [Suspect]
     Active Substance: TESTOSTERONE CYPIONATE
     Dosage: 200 MG, EVERY 2 WEEKS
     Route: 030
  7. FELODIPINE. [Concomitant]
     Active Substance: FELODIPINE
  8. RESTASIS [Concomitant]
     Active Substance: CYCLOSPORINE
  9. DEPO-TESTOSTERONE [Suspect]
     Active Substance: TESTOSTERONE CYPIONATE
     Dosage: 200 MG, EVERY 2 WEEKS
     Route: 030
  10. AMLODIPINE [Concomitant]
     Active Substance: AMLODIPINE BESYLATE
  11. DUTASTERIDE. [Concomitant]
     Active Substance: DUTASTERIDE
  12. PANTOPRAZOLE [Concomitant]
     Active Substance: PANTOPRAZOLE

REACTIONS (2)
  - Feeling hot [Unknown]
  - Product quality issue [Unknown]

NARRATIVE: CASE EVENT DATE: 2017
